FAERS Safety Report 10596695 (Version 1)
Quarter: 2014Q4

REPORT INFORMATION
  Report Type: Spontaneous
  Country: FR (occurrence: FR)
  Receive Date: 20141120
  Receipt Date: 20141120
  Transmission Date: 20150529
  Serious: Yes (Hospitalization)
  Sender: FDA-Public Use
  Company Number: FR-009507513-1411FRA005800

PATIENT
  Age: 80 Year
  Sex: Female

DRUGS (9)
  1. MADOPAR [Suspect]
     Active Substance: BENSERAZIDE HYDROCHLORIDE\LEVODOPA
     Dosage: STRENGTH 125 (UNITS NOT REPORTED), 1 DF (125 MG), QD
     Route: 048
  2. METOPROLOL TARTRATE. [Suspect]
     Active Substance: METOPROLOL TARTRATE
     Dosage: STRENGTH 50 (UNITS NOT REPORTED), 2 DF (100 MG), QD
     Route: 048
  3. VENLAFAXINE HYDROCHLORIDE. [Suspect]
     Active Substance: VENLAFAXINE HYDROCHLORIDE
     Dosage: STRENGTH: 75 (UNITS NOT REPORTED), 3 DF (225 MG), QD
     Route: 048
  4. METOPROLOL TARTRATE. [Suspect]
     Active Substance: METOPROLOL TARTRATE
     Dosage: UNK
     Route: 048
  5. LYSANXIA [Suspect]
     Active Substance: PRAZEPAM
     Dosage: STRENGTH: 10 (UNITS NOT REPORTED); 2.5 DF, QD
     Route: 048
  6. ZYMAD [Concomitant]
     Active Substance: CHOLECALCIFEROL
     Dosage: 1 DF, QD (ALSO REPORTED AS MONTHLY)
     Route: 048
  7. KARDEGIC [Concomitant]
     Active Substance: ASPIRIN LYSINE
     Dosage: 160 MG, QD
     Route: 048
  8. ESOMEPRAZOLE MAGNESIUM. [Concomitant]
     Active Substance: ESOMEPRAZOLE MAGNESIUM
     Dosage: STRENGTH: 40 (UNITS NOT REPORTED), 1 DF (40 MG), QD
     Route: 048
  9. NORSET [Suspect]
     Active Substance: MIRTAZAPINE
     Dosage: STRENGTH 15 (UNITS NOT REPORTED), 2 DF (30 MG), QD
     Route: 048

REACTIONS (2)
  - Fall [Unknown]
  - Bradycardia [Unknown]

NARRATIVE: CASE EVENT DATE: 20140903
